FAERS Safety Report 6283312-9 (Version None)
Quarter: 2009Q3

REPORT INFORMATION
  Report Type: 
  Country: None (occurrence: None)
  Receive Date: 20090722
  Receipt Date: 20090722
  Transmission Date: 20100115
  Serious: Yes (Other)
  Sender: FDA-Public Use
  Company Number: None

PATIENT
  Age: 82 Year
  Sex: Female
  Weight: 68.0396 kg

DRUGS (1)
  1. NEOMYCIN SULFATE, POLYMYXIN B SULFATE + HYDROCORTISONE [Suspect]
     Dosage: OTIC
     Route: 047

REACTIONS (1)
  - DEAFNESS [None]
